FAERS Safety Report 6379188-1 (Version None)
Quarter: 2009Q3

REPORT INFORMATION
  Report Type: 
  Country: None (occurrence: None)
  Receive Date: 20090923
  Receipt Date: 20090923
  Transmission Date: 20100115
  Serious: Yes (Life-Threatening)
  Sender: FDA-Public Use
  Company Number: None

PATIENT
  Age: 51 Year
  Sex: Female
  Weight: 65.7716 kg

DRUGS (1)
  1. LORAZEPAM [Suspect]
     Indication: ANXIETY
     Dosage: ONCE NIGHTLY ONCE NIGHTLY PO
     Route: 048
     Dates: start: 20090701, end: 20090731

REACTIONS (2)
  - DEPRESSION [None]
  - DRUG WITHDRAWAL SYNDROME [None]
